FAERS Safety Report 13097295 (Version 1)
Quarter: 2017Q1

REPORT INFORMATION
  Report Type: Spontaneous
  Country: US (occurrence: US)
  Receive Date: 20170107
  Receipt Date: 20170107
  Transmission Date: 20170428
  Serious: Yes (Death)
  Sender: FDA-Public Use
  Company Number: None

PATIENT
  Age: 72 Year
  Sex: Female

DRUGS (17)
  1. TEMOZOLOMIDE 100MG CAP TEVA [Suspect]
     Active Substance: TEMOZOLOMIDE
     Indication: HEPATIC CANCER
     Dosage: 3 CAP QD DAYS 1-5/28DAY PO
     Route: 048
     Dates: start: 20160913, end: 201701
  2. SMZ/TMP DS [Concomitant]
     Active Substance: SULFAMETHOXAZOLE\TRIMETHOPRIM
  3. FUROSEMIDE. [Concomitant]
     Active Substance: FUROSEMIDE
  4. ONDANESTRON [Concomitant]
  5. GABAPENTIN. [Concomitant]
     Active Substance: GABAPENTIN
  6. PREDNISONE. [Concomitant]
     Active Substance: PREDNISONE
  7. VENELEX [Concomitant]
     Active Substance: BALSAM PERU\CASTOR OIL
  8. PROAIR HFA [Concomitant]
     Active Substance: ALBUTEROL SULFATE
  9. ALBUTEROL. [Concomitant]
     Active Substance: ALBUTEROL
  10. FENTANYL. [Concomitant]
     Active Substance: FENTANYL
  11. DICLOFENAC [Concomitant]
     Active Substance: DICLOFENAC
  12. TEMOZOLOMIDE 100MG CAP TEVA [Suspect]
     Active Substance: TEMOZOLOMIDE
     Indication: PLEURAL DISORDER
     Dosage: 3 CAP QD DAYS 1-5/28DAY PO
     Route: 048
     Dates: start: 20160913, end: 201701
  13. SCOPOLOMINE [Concomitant]
  14. POT CHLORIDE [Concomitant]
     Active Substance: POTASSIUM CHLORIDE
  15. VALACYCLOVIR [Concomitant]
     Active Substance: VALACYCLOVIR HYDROCHLORIDE
  16. OXYCODONE [Concomitant]
     Active Substance: OXYCODONE
  17. TEMOZOLOMIDE 100MG CAP TEVA [Suspect]
     Active Substance: TEMOZOLOMIDE
     Indication: BILE DUCT CANCER
     Dosage: 3 CAP QD DAYS 1-5/28DAY PO
     Route: 048
     Dates: start: 20160913, end: 201701

REACTIONS (1)
  - Death [None]

NARRATIVE: CASE EVENT DATE: 201701
